FAERS Safety Report 8111193-7 (Version None)
Quarter: 2012Q1

REPORT INFORMATION
  Report Type: 
  Country: None (occurrence: None)
  Receive Date: 20120203
  Receipt Date: 20110614
  Transmission Date: 20120608
  Serious: Yes (Life-Threatening, Hospitalization, Other)
  Sender: FDA-Public Use
  Company Number: US-GLAXOSMITHKLINE-A0931475A

PATIENT
  Age: 28 Year
  Sex: Male

DRUGS (2)
  1. LAMICTAL [Suspect]
     Indication: BIPOLAR DISORDER
     Dosage: 25MG PER DAY
     Route: 048
     Dates: start: 20110404, end: 20110418
  2. RISPERDAL [Suspect]
     Indication: BIPOLAR DISORDER
     Dosage: 2MG AT NIGHT
     Route: 048
     Dates: end: 20110401

REACTIONS (10)
  - LYMPH NODE PAIN [None]
  - OEDEMA PERIPHERAL [None]
  - WHITE BLOOD CELL COUNT INCREASED [None]
  - PAIN IN EXTREMITY [None]
  - NEUTROPHIL COUNT INCREASED [None]
  - STEVENS-JOHNSON SYNDROME [None]
  - BLISTER [None]
  - AXILLARY PAIN [None]
  - RED CELL DISTRIBUTION WIDTH INCREASED [None]
  - DERMATITIS ACNEIFORM [None]
